FAERS Safety Report 6102239-6 (Version None)
Quarter: 2009Q1

REPORT INFORMATION
  Report Type: 
  Country: None (occurrence: None)
  Receive Date: 20090304
  Receipt Date: 20090227
  Transmission Date: 20090719
  Serious: Yes (Hospitalization, Other)
  Sender: FDA-Public Use
  Company Number: AT-WYE-G02449608

PATIENT
  Sex: Female

DRUGS (3)
  1. VENLAFAXINE HCL [Suspect]
     Dates: start: 20030101, end: 20080124
  2. HOVA [Suspect]
     Dosage: DOSE AND FREQUENCY UNKNOWN
     Dates: start: 20080124
  3. TRITTICO [Suspect]
     Dosage: DOSE AND FREQUENCY UNKNOWN
     Dates: start: 20030101, end: 20080124

REACTIONS (3)
  - CONVULSION [None]
  - DRUG EXPOSURE DURING PREGNANCY [None]
  - HYPOKINESIA [None]
